FAERS Safety Report 13994482 (Version 1)
Quarter: 2017Q3

REPORT INFORMATION
  Report Type: Spontaneous
  Country: US (occurrence: US)
  Receive Date: 20170920
  Receipt Date: 20170920
  Transmission Date: 20171128
  Serious: No
  Sender: FDA-Public Use
  Company Number: US-BIOGEN-2014BI060316

PATIENT
  Age: 63 Year
  Sex: Male

DRUGS (2)
  1. TECFIDERA [Suspect]
     Active Substance: DIMETHYL FUMARATE
     Route: 065
     Dates: start: 20140529, end: 20140609
  2. TECFIDERA [Suspect]
     Active Substance: DIMETHYL FUMARATE
     Indication: MULTIPLE SCLEROSIS
     Route: 048
     Dates: start: 20140529, end: 20140612

REACTIONS (14)
  - Hyperaesthesia [Unknown]
  - Feeling hot [Recovered/Resolved]
  - Joint stiffness [Unknown]
  - Fatigue [Unknown]
  - Multiple sclerosis relapse [Unknown]
  - Memory impairment [Recovered/Resolved]
  - Mobility decreased [Unknown]
  - Motor dysfunction [Unknown]
  - Sensory disturbance [Recovered/Resolved]
  - Dysstasia [Unknown]
  - Insomnia [Not Recovered/Not Resolved]
  - Pain [Unknown]
  - Musculoskeletal disorder [Unknown]
  - Discomfort [Unknown]

NARRATIVE: CASE EVENT DATE: 201406
